FAERS Safety Report 8611174-0 (Version None)
Quarter: 2012Q3

REPORT INFORMATION
  Report Type: 
  Country: None (occurrence: None)
  Receive Date: 20120822
  Receipt Date: 20120814
  Transmission Date: 20120928
  Serious: No
  Sender: FDA-Public Use
  Company Number: US-BAYER-2012-084636

PATIENT

DRUGS (3)
  1. ALEVE (CAPLET) [Suspect]
     Route: 048
  2. TYLENOL [Concomitant]
  3. ALEVE (CAPLET) [Suspect]
     Indication: PAIN
     Route: 048

REACTIONS (4)
  - ABDOMINAL PAIN UPPER [None]
  - CHEST PAIN [None]
  - PAIN [None]
  - DYSPNOEA [None]
